FAERS Safety Report 13181025 (Version 1)
Quarter: 2017Q1

REPORT INFORMATION
  Report Type: Spontaneous
  Country: US (occurrence: US)
  Receive Date: 20170202
  Receipt Date: 20170202
  Transmission Date: 20170428
  Serious: No
  Sender: FDA-Public Use
  Company Number: US-SMITH AND NEPHEW, INC-2016SMT00420

PATIENT
  Age: 61 Year
  Sex: Male
  Weight: 118.82 kg

DRUGS (2)
  1. REGRANEX [Suspect]
     Active Substance: BECAPLERMIN
     Indication: DIABETIC ULCER
     Dosage: UNK UNK, 1X/DAY
     Route: 061
     Dates: start: 201603
  2. UNSPECIFIED CONCOMITANT MEDICATIONS [Concomitant]

REACTIONS (4)
  - Wound haemorrhage [Recovered/Resolved]
  - Incorrect drug administration duration [Unknown]
  - Wound complication [Recovered/Resolved]
  - Application site discharge [Recovered/Resolved]

NARRATIVE: CASE EVENT DATE: 20160507
